FAERS Safety Report 19497717 (Version 3)
Quarter: 2021Q3

REPORT INFORMATION
  Report Type: Spontaneous
  Country: MY (occurrence: MY)
  Receive Date: 20210706
  Receipt Date: 20210724
  Transmission Date: 20211014
  Serious: Yes (Hospitalization)
  Sender: FDA-Public Use
  Company Number: MY-ROCHE-2863315

PATIENT
  Age: 73 Year
  Sex: Male

DRUGS (3)
  1. PANTOPRAZOLE [Concomitant]
     Active Substance: PANTOPRAZOLE
     Indication: PROPHYLAXIS
  2. PANTOPRAZOLE [Concomitant]
     Active Substance: PANTOPRAZOLE
     Indication: STRESS ULCER
     Route: 042
     Dates: start: 20200715, end: 20200718
  3. ACTILYSE [Suspect]
     Active Substance: ALTEPLASE
     Indication: ISCHAEMIC STROKE
     Dosage: 50MG/50ML, NULL MG MILLIGRAM(S) REPORTED 5MG STAT OVER 1 MINUTE FOLLOWED BY 45 MG INFUSION OVER 1 HO
     Route: 042
     Dates: start: 20200715, end: 20200715

REACTIONS (1)
  - Synovial cyst [Recovering/Resolving]

NARRATIVE: CASE EVENT DATE: 20200716
